FAERS Safety Report 4938812-8 (Version None)
Quarter: 2006Q1

REPORT INFORMATION
  Report Type: 
  Country: None (occurrence: None)
  Receive Date: 20060131
  Receipt Date: 20051212
  Transmission Date: 20060701
  Serious: No
  Sender: FDA-Public Use
  Company Number: 200520451US

PATIENT
  Age: 63 Year
  Sex: Female

DRUGS (4)
  1. KETEK [Suspect]
     Indication: SINUSITIS
     Dates: start: 20051101, end: 20051101
  2. LISINOPRIL [Concomitant]
  3. POTASSIUM [Concomitant]
  4. ALLEGRA [Concomitant]

REACTIONS (4)
  - ABDOMINAL PAIN [None]
  - DIARRHOEA [None]
  - NAUSEA [None]
  - VISION BLURRED [None]
